FAERS Safety Report 26177861 (Version 1)
Quarter: 2025Q4

REPORT INFORMATION
  Report Type: Report from Study
  Country: JP (occurrence: JP)
  Receive Date: 20251219
  Receipt Date: 20251219
  Transmission Date: 20260118
  Serious: Yes (Other)
  Sender: ASTELLAS
  Company Number: JP-ASTELLAS-2025-AER-070177

PATIENT
  Age: 53 Year
  Sex: Female
  Weight: 47 kg

DRUGS (32)
  1. VYLOY [Suspect]
     Active Substance: ZOLBETUXIMAB-CLZB
     Indication: Gastric cancer
     Route: 065
     Dates: start: 20250528, end: 20250528
  2. VYLOY [Suspect]
     Active Substance: ZOLBETUXIMAB-CLZB
     Route: 065
     Dates: start: 20250618, end: 20250919
  3. OXALIPLATIN [Suspect]
     Active Substance: OXALIPLATIN
     Indication: Gastric cancer
     Route: 065
     Dates: start: 20250528
  4. DEXAMETHASONE [Concomitant]
     Active Substance: DEXAMETHASONE
     Indication: Prophylaxis of nausea and vomiting
     Route: 065
     Dates: start: 20250528
  5. FLUOROURACIL [Concomitant]
     Active Substance: FLUOROURACIL
     Indication: Gastric cancer
     Route: 065
     Dates: start: 20250528
  6. LEVOLEUCOVORIN CALCIUM [Concomitant]
     Active Substance: LEVOLEUCOVORIN CALCIUM
     Indication: Gastric cancer
     Route: 065
     Dates: start: 20250528
  7. PALONOSETRON [Concomitant]
     Active Substance: PALONOSETRON
     Indication: Prophylaxis of nausea and vomiting
     Route: 065
     Dates: start: 20250528
  8. METOCLOPRAMIDE [Concomitant]
     Active Substance: METOCLOPRAMIDE
     Indication: Prophylaxis of nausea and vomiting
     Dosage: ROUTE OF ADMINISTRATION: INJECTION
     Route: 050
     Dates: start: 20250528, end: 20250528
  9. METOCLOPRAMIDE [Concomitant]
     Active Substance: METOCLOPRAMIDE
     Indication: Nausea
     Dosage: ROUTE OF ADMINISTRATION: INJECTION
     Route: 050
     Dates: start: 20250618
  10. METOCLOPRAMIDE [Concomitant]
     Active Substance: METOCLOPRAMIDE
     Indication: Vomiting
  11. METOCLOPRAMIDE [Concomitant]
     Active Substance: METOCLOPRAMIDE
     Indication: Nausea
  12. CHLORPHENIRAMINE [Concomitant]
     Active Substance: CHLORPHENIRAMINE
     Indication: Prophylaxis of nausea and vomiting
     Route: 065
     Dates: start: 20250528
  13. ACETAMINOPHEN [Concomitant]
     Active Substance: ACETAMINOPHEN
     Indication: Abdominal pain
     Route: 048
     Dates: start: 20250531, end: 20250531
  14. ACETAMINOPHEN [Concomitant]
     Active Substance: ACETAMINOPHEN
     Indication: Prophylaxis
     Route: 048
     Dates: start: 20250601, end: 20250604
  15. ACETAMINOPHEN [Concomitant]
     Active Substance: ACETAMINOPHEN
     Route: 048
     Dates: start: 20250619, end: 20250620
  16. ACETAMINOPHEN [Concomitant]
     Active Substance: ACETAMINOPHEN
     Route: 048
     Dates: start: 20250528, end: 20250529
  17. CORTRIL [Concomitant]
     Active Substance: HYDROCORTISONE
     Indication: Prophylaxis
     Route: 048
     Dates: start: 20250617, end: 20250620
  18. CORTRIL [Concomitant]
     Active Substance: HYDROCORTISONE
     Route: 048
     Dates: start: 20250528, end: 20250614
  19. Magnesium Oxide Tablets [Concomitant]
     Indication: Prophylaxis
     Route: 048
     Dates: start: 202506, end: 20250620
  20. Magnesium Oxide Tablets [Concomitant]
     Route: 048
     Dates: start: 20250528, end: 202506
  21. MOSAPRIDE CITRATE [Concomitant]
     Active Substance: MOSAPRIDE CITRATE
     Indication: Prophylaxis
     Route: 048
     Dates: start: 20250617, end: 20250620
  22. MOSAPRIDE CITRATE [Concomitant]
     Active Substance: MOSAPRIDE CITRATE
     Route: 048
     Dates: start: 20250528, end: 20250604
  23. APREPITANT [Concomitant]
     Active Substance: APREPITANT
     Indication: Prophylaxis
     Route: 048
  24. APREPITANT [Concomitant]
     Active Substance: APREPITANT
     Route: 048
     Dates: start: 20250529, end: 20250530
  25. ZICTHORU Tapes [Concomitant]
     Indication: Abdominal pain
     Route: 061
     Dates: start: 20250617, end: 20251003
  26. ZICTHORU Tapes [Concomitant]
     Indication: Prophylaxis
     Route: 061
     Dates: start: 20250531, end: 20250604
  27. TARLIGE OD TABLETS [Concomitant]
     Indication: Abdominal pain
     Route: 048
     Dates: start: 20250618, end: 20251003
  28. TARLIGE OD TABLETS [Concomitant]
     Indication: Prophylaxis
     Route: 048
     Dates: start: 20250531, end: 20250603
  29. Fentanyl Citrate Tapes [Concomitant]
     Indication: Cancer pain
     Route: 061
     Dates: start: 20250617, end: 20251003
  30. Fentanyl Citrate Tapes [Concomitant]
     Route: 061
     Dates: start: 20250603, end: 20250604
  31. HYDROXYZINE HYDROCHLORIDE [Concomitant]
     Active Substance: HYDROXYZINE HYDROCHLORIDE
     Indication: Prophylaxis of nausea and vomiting
     Route: 065
     Dates: start: 20250618
  32. IRINOTECAN [Concomitant]
     Active Substance: IRINOTECAN
     Indication: Gastric cancer
     Route: 065

REACTIONS (6)
  - Hypokalaemia [Recovered/Resolved]
  - Decreased appetite [Not Recovered/Not Resolved]
  - Peripheral sensory neuropathy [Not Recovered/Not Resolved]
  - Nausea [Recovered/Resolved]
  - Hyperhidrosis [Recovered/Resolved]
  - Eructation [Recovered/Resolved]

NARRATIVE: CASE EVENT DATE: 20250717
